FAERS Safety Report 5442787-5 (Version None)
Quarter: 2007Q3

REPORT INFORMATION
  Report Type: 
  Country: None (occurrence: None)
  Receive Date: 20070904
  Receipt Date: 20070815
  Transmission Date: 20080115
  Serious: No
  Sender: FDA-Public Use
  Company Number: US-BOEHRINGER INGELHEIM PHARMACEUTICALS, INC.-2007-BP-19353BP

PATIENT
  Age: 53 Year
  Sex: Male

DRUGS (5)
  1. MIRAPEX [Suspect]
     Indication: RESTLESS LEGS SYNDROME
     Route: 048
     Dates: start: 20070101
  2. CELEXA [Concomitant]
  3. LIPITOR [Concomitant]
  4. M.V.I. [Concomitant]
  5. PARCOPA [Concomitant]

REACTIONS (1)
  - RESTLESS LEGS SYNDROME [None]
